FAERS Safety Report 25700199 (Version 2)
Quarter: 2025Q3

REPORT INFORMATION
  Report Type: Spontaneous
  Country: EU (occurrence: EU)
  Receive Date: 20250819
  Receipt Date: 20250825
  Transmission Date: 20251021
  Serious: Yes (Life-Threatening, Hospitalization, Other)
  Sender: PFIZER
  Company Number: EU-PFIZER INC-PV202500099781

PATIENT
  Age: 74 Year
  Sex: Female

DRUGS (5)
  1. LIDOCAINE HYDROCHLORIDE [Suspect]
     Active Substance: LIDOCAINE HYDROCHLORIDE
     Indication: Arrhythmic storm
  2. DEXMEDETOMIDINE HYDROCHLORIDE [Suspect]
     Active Substance: DEXMEDETOMIDINE HYDROCHLORIDE
     Indication: Arrhythmic storm
  3. AMIODARONE [Suspect]
     Active Substance: AMIODARONE
     Indication: Arrhythmic storm
  4. METOPROLOL [Suspect]
     Active Substance: METOPROLOL
     Indication: Arrhythmic storm
  5. MAGNESIUM [Suspect]
     Active Substance: MAGNESIUM
     Indication: Arrhythmic storm

REACTIONS (1)
  - Drug ineffective [Unknown]
